FAERS Safety Report 9381541 (Version 1)
Quarter: 2013Q3

REPORT INFORMATION
  Report Type: Spontaneous
  Country: FR (occurrence: FR)
  Receive Date: 20130703
  Receipt Date: 20130703
  Transmission Date: 20140515
  Serious: Yes (Disabling)
  Sender: FDA-Public Use
  Company Number: FR-009507513-1305FRA010717

PATIENT
  Age: 67 Year
  Sex: Female
  Weight: 68 kg

DRUGS (1)
  1. FOSAVANCE [Suspect]
     Dosage: UNK
     Route: 048
     Dates: start: 2012

REACTIONS (2)
  - Chondrocalcinosis [Not Recovered/Not Resolved]
  - Joint swelling [Recovered/Resolved]
